FAERS Safety Report 16878898 (Version 7)
Quarter: 2019Q4

REPORT INFORMATION
  Report Type: Report from Study
  Country: US (occurrence: US)
  Receive Date: 20191002
  Receipt Date: 20191206
  Transmission Date: 20200122
  Serious: Yes (Hospitalization, Other)
  Sender: FDA-Public Use
  Company Number: US-GILEAD-2019-0431385

PATIENT
  Age: 44 Year
  Sex: Male

DRUGS (3)
  1. TREPROSTINIL. [Concomitant]
     Active Substance: TREPROSTINIL
  2. AMBRISENTAN [Suspect]
     Active Substance: AMBRISENTAN
     Indication: PRODUCT USED FOR UNKNOWN INDICATION
     Dosage: 10 MG, QD
     Route: 048
     Dates: start: 20190926
  3. REMODULIN [Suspect]
     Active Substance: TREPROSTINIL
     Indication: PRODUCT USED FOR UNKNOWN INDICATION
     Route: 065

REACTIONS (9)
  - Abdominal pain [Unknown]
  - Liver disorder [Unknown]
  - Headache [Not Recovered/Not Resolved]
  - Sepsis [Recovered/Resolved]
  - Chills [Recovered/Resolved]
  - Arthralgia [Unknown]
  - Diarrhoea [Unknown]
  - Gastrointestinal oedema [Unknown]
  - Pain in jaw [Not Recovered/Not Resolved]

NARRATIVE: CASE EVENT DATE: 20191130
